FAERS Safety Report 10719368 (Version 2)
Quarter: 2015Q1

REPORT INFORMATION
  Report Type: Spontaneous
  Country: US (occurrence: US)
  Receive Date: 20150119
  Receipt Date: 20150119
  Transmission Date: 20150721
  Serious: No
  Sender: FDA-Public Use
  Company Number: US-UNITED THERAPEUTICS-UNT-2014-003723

PATIENT
  Age: 30 Year
  Sex: Female
  Weight: 86.17 kg

DRUGS (2)
  1. COUMADIN [Concomitant]
     Active Substance: WARFARIN SODIUM
     Indication: PRODUCT USED FOR UNKNOWN INDICATION
  2. REMODULIN [Suspect]
     Active Substance: TREPROSTINIL
     Indication: PULMONARY ARTERIAL HYPERTENSION
     Dosage: 0.036 ?G/KG/MIN, CONTINUING
     Route: 058
     Dates: start: 20120629

REACTIONS (8)
  - Device dislocation [Unknown]
  - Drug dose omission [Unknown]
  - Infusion site pain [Not Recovered/Not Resolved]
  - Infusion site erythema [Not Recovered/Not Resolved]
  - Infusion site oedema [Not Recovered/Not Resolved]
  - Back pain [Recovered/Resolved]
  - Infusion site induration [Recovered/Resolved]
  - Infusion site rash [Recovered/Resolved]

NARRATIVE: CASE EVENT DATE: 20120629
